FAERS Safety Report 12486962 (Version 1)
Quarter: 2016Q2

REPORT INFORMATION
  Report Type: Spontaneous
  Country: None (occurrence: None)
  Receive Date: 20160621
  Receipt Date: 20160621
  Transmission Date: 20160815
  Serious: No
  Sender: FDA-Public Use
  Company Number: None

PATIENT
  Sex: Male

DRUGS (3)
  1. HUMALOG [Suspect]
     Active Substance: INSULIN LISPRO
  2. METFORMIN [Suspect]
     Active Substance: METFORMIN HYDROCHLORIDE
  3. LEVEMIR [Suspect]
     Active Substance: INSULIN DETEMIR

REACTIONS (7)
  - Injection site swelling [None]
  - Glycosylated haemoglobin increased [None]
  - Nausea [None]
  - Injection site scar [None]
  - Injection site cellulitis [None]
  - Gastrointestinal disorder [None]
  - Injection site erythema [None]
